FAERS Safety Report 9812760 (Version 1)
Quarter: 2014Q1

REPORT INFORMATION
  Report Type: Spontaneous
  Country: US (occurrence: None)
  Receive Date: 20140109
  Receipt Date: 20140109
  Transmission Date: 20141002
  Serious: Yes (Other)
  Sender: FDA-Public Use
  Company Number: None

PATIENT
  Age: 66 Year
  Sex: Female
  Weight: 44.45 kg

DRUGS (20)
  1. LINZESS [Suspect]
     Indication: INFLAMMATORY BOWEL DISEASE
  2. VITAMINS B6 [Concomitant]
  3. VITAMIN B12 [Concomitant]
  4. BIOTIN [Concomitant]
  5. CALCIUM W/B [Concomitant]
  6. D3 [Concomitant]
  7. FISH OIL [Concomitant]
  8. FOLIC ACID [Concomitant]
  9. ZINC [Concomitant]
  10. ALPRAZOLAM [Concomitant]
  11. AMITZA [Concomitant]
  12. ASPIRIN [Concomitant]
  13. CRESTOR [Concomitant]
  14. DIOVAN [Concomitant]
  15. PREVACID [Concomitant]
  16. PROLIA [Concomitant]
  17. RESTASIS [Concomitant]
  18. STOOL SOFTNER [Concomitant]
  19. PLAQUENIL [Concomitant]
  20. E200 [Concomitant]

REACTIONS (3)
  - Nausea [None]
  - Product commingling [None]
  - Extra dose administered [None]
